FAERS Safety Report 12304601 (Version 1)
Quarter: 2016Q2

REPORT INFORMATION
  Report Type: Report from Study
  Country: AE (occurrence: AE)
  Receive Date: 20160426
  Receipt Date: 20160426
  Transmission Date: 20160815
  Serious: Yes (Hospitalization, Other)
  Sender: FDA-Public Use
  Company Number: PHHY2015AE144881

PATIENT
  Age: 42 Year
  Sex: Female
  Weight: 88.6 kg

DRUGS (1)
  1. EXFORGE HCT [Suspect]
     Active Substance: AMLODIPINE BESYLATE\HYDROCHLOROTHIAZIDE\VALSARTAN
     Indication: HYPERTENSION
     Dosage: 160MG VALSARTAN AND 5MG AMLODIPINE AND 12.5MG HYDROCHOLOROTHIAZIDE, QD
     Route: 048
     Dates: start: 20150526, end: 20150806

REACTIONS (4)
  - Abdominal pain lower [Recovering/Resolving]
  - Maternal exposure during pregnancy [Unknown]
  - Vaginal haemorrhage [Recovering/Resolving]
  - Abortion spontaneous [Unknown]
